FAERS Safety Report 7298030-8 (Version None)
Quarter: 2011Q1

REPORT INFORMATION
  Report Type: 
  Country: None (occurrence: None)
  Receive Date: 20110217
  Receipt Date: 20110215
  Transmission Date: 20110831
  Serious: No
  Sender: FDA-Public Use
  Company Number: US-PFIZER INC-2011019849

PATIENT
  Sex: Male

DRUGS (2)
  1. PRISTIQ [Suspect]
     Dosage: 100 MG, UNK
     Route: 048
     Dates: start: 20100101
  2. PRISTIQ [Suspect]
     Dosage: 50 MG, UNK

REACTIONS (3)
  - PARAESTHESIA [None]
  - WITHDRAWAL SYNDROME [None]
  - TINNITUS [None]
